FAERS Safety Report 21479300 (Version 4)
Quarter: 2022Q4

REPORT INFORMATION
  Report Type: Spontaneous
  Country: US (occurrence: US)
  Receive Date: 20221019
  Receipt Date: 20221219
  Transmission Date: 20230113
  Serious: Yes (Hospitalization, Other)
  Sender: FDA-Public Use
  Company Number: US-PFIZER INC-PV202200085021

PATIENT
  Age: 71 Year
  Sex: Female
  Weight: 94.331 kg

DRUGS (19)
  1. IBRANCE [Suspect]
     Active Substance: PALBOCICLIB
     Indication: Breast cancer female
     Dosage: 100 MG, CYCLIC (DAYS 1-14 OF EACH 28 DAY CYCLE
     Route: 048
     Dates: start: 20200807
  2. IBRANCE [Suspect]
     Active Substance: PALBOCICLIB
     Indication: Breast cancer stage IV
     Dosage: 100 MG, CYCLIC (DAILY FOR 14 DAYS, THEN 14 DAYS OFF)
     Route: 048
     Dates: start: 20200912
  3. IBRANCE [Suspect]
     Active Substance: PALBOCICLIB
     Dosage: 100 MG, CYCLIC (DAYS 1-14 OF EACH 28 DAY CYCLE
     Route: 048
  4. IBRANCE [Suspect]
     Active Substance: PALBOCICLIB
     Dosage: 75 MG, CYCLIC (DAILY ON DAYS 1-14 OF 28 DAY CYCLE)
     Route: 048
  5. ANASTROZOLE [Concomitant]
     Active Substance: ANASTROZOLE
     Dosage: 1 MG, DAILY
     Route: 048
     Dates: start: 20200907
  6. LISINOPRIL [Concomitant]
     Active Substance: LISINOPRIL
     Dosage: UNK
  7. METFORMIN [Concomitant]
     Active Substance: METFORMIN HYDROCHLORIDE
     Dosage: TAKE 2 (TWO) TIMES DAILY WITH MEALS
     Route: 048
  8. OMEGA-3 FATTY ACIDS [Concomitant]
     Active Substance: OMEGA-3 FATTY ACIDS
     Dosage: UNK
  9. PRAVASTATIN [Concomitant]
     Active Substance: PRAVASTATIN
     Dosage: UNK
  10. VITAMIN D NOS [Concomitant]
     Active Substance: VITAMIN D NOS
     Dosage: UNK
  11. XGEVA [Concomitant]
     Active Substance: DENOSUMAB
     Indication: Metastases to bone
     Dosage: 120 MG, EVERY 3 MONTHS (INDEFINITELY, SQ EVERY 3 MONTHS)
     Route: 058
     Dates: start: 20200902
  12. XGEVA [Concomitant]
     Active Substance: DENOSUMAB
     Dosage: 120 MG (EVERY 28 DAYS)
     Route: 058
     Dates: start: 20200920
  13. ARIMIDEX [Concomitant]
     Active Substance: ANASTROZOLE
     Indication: Hormone therapy
     Dosage: 1 MG, DAILY
     Dates: start: 20200803
  14. CEFAZOLIN [Concomitant]
     Active Substance: CEFAZOLIN
     Dosage: UNK
  15. CEFTRIAXONE [Concomitant]
     Active Substance: CEFTRIAXONE
     Dosage: UNK
     Dates: start: 20200916, end: 20200920
  16. CEFDINIR [Concomitant]
     Active Substance: CEFDINIR
     Dosage: TAKE 1 CAPSULE BY MOUTH 2 (TWO) TIMES DAILY FOR 4 DAYS
     Route: 048
  17. BENZONATATE [Concomitant]
     Active Substance: BENZONATATE
     Indication: Cough
     Dosage: TAKE 1 CAPSULE EVERY 9 (EIGHT) HOURS AS NEEDED
     Route: 048
  18. LISINOPRIL [Concomitant]
     Active Substance: LISINOPRIL
     Dosage: 20 MG, DAILY
     Route: 048
  19. POTASSIUM CHLORIDE [Concomitant]
     Active Substance: POTASSIUM CHLORIDE
     Dosage: UNK
     Route: 048

REACTIONS (36)
  - Metabolic encephalopathy [Recovered/Resolved]
  - Escherichia urinary tract infection [Recovered/Resolved]
  - COVID-19 [Recovered/Resolved]
  - Bone pain [Unknown]
  - Immunodeficiency [Recovered/Resolved]
  - Myocardial ischaemia [Unknown]
  - Hypokalaemia [Unknown]
  - Interstitial lung disease [Unknown]
  - Cerebral atrophy [Unknown]
  - Pancytopenia [Unknown]
  - Neutropenia [Recovered/Resolved]
  - Thrombocytopenia [Unknown]
  - Carotid arteriosclerosis [Unknown]
  - Cerebral ischaemia [Unknown]
  - Leukopenia [Unknown]
  - Arthralgia [Unknown]
  - Confusional state [Unknown]
  - Anaemia macrocytic [Unknown]
  - Lethargy [Unknown]
  - Paranasal sinus mucosal hypertrophy [Unknown]
  - Mastoid effusion [Unknown]
  - Paranasal cyst [Unknown]
  - Cardiomegaly [Unknown]
  - Aspartate aminotransferase increased [Unknown]
  - Blood alkaline phosphatase decreased [Unknown]
  - Blood pressure diastolic decreased [Unknown]
  - Blood glucose increased [Unknown]
  - Blood chloride increased [Unknown]
  - Blood calcium decreased [Unknown]
  - Blood phosphorus decreased [Unknown]
  - Blood albumin decreased [Unknown]
  - Blood bilirubin increased [Unknown]
  - Bilirubin conjugated increased [Unknown]
  - Protein total decreased [Unknown]
  - Product use issue [Unknown]
  - Off label use [Unknown]

NARRATIVE: CASE EVENT DATE: 20220221
